FAERS Safety Report 21831598 (Version 1)
Quarter: 2023Q1

REPORT INFORMATION
  Report Type: Report from Study
  Country: US (occurrence: US)
  Receive Date: 20230106
  Receipt Date: 20230106
  Transmission Date: 20230417
  Serious: Yes (Hospitalization)
  Sender: FDA-Public Use
  Company Number: US-TEVA-2023-US-2843199

PATIENT
  Age: 22 Year
  Sex: Female
  Weight: 53 kg

DRUGS (5)
  1. METHOTREXATE [Suspect]
     Active Substance: METHOTREXATE
     Indication: Acute lymphocytic leukaemia
     Route: 048
     Dates: start: 20221121, end: 20221212
  2. RUXOLITINIB [Suspect]
     Active Substance: RUXOLITINIB
     Indication: Acute lymphocytic leukaemia
     Dosage: 140 MILLIGRAM DAILY;
     Route: 048
     Dates: start: 20201222, end: 20221215
  3. VINCRISTINE [Suspect]
     Active Substance: VINCRISTINE
     Indication: Acute lymphocytic leukaemia
     Dosage: 2 MILLIGRAM DAY 1, 29, 57
     Route: 042
     Dates: start: 20221114, end: 20221205
  4. MERCAPTOPURINE [Suspect]
     Active Substance: MERCAPTOPURINE
     Indication: Acute lymphocytic leukaemia
     Dosage: 100 MILLIGRAM DAILY; DAY 1-84
     Route: 048
     Dates: start: 20221114, end: 20221215
  5. METHOTREXATE [Suspect]
     Active Substance: METHOTREXATE
     Indication: Acute lymphocytic leukaemia
     Dosage: DAY 1, 29, CYCLE 1 + 2 ON
     Route: 037
     Dates: start: 20221114

REACTIONS (2)
  - Febrile neutropenia [Recovering/Resolving]
  - Influenza [Recovering/Resolving]

NARRATIVE: CASE EVENT DATE: 20221216
